FAERS Safety Report 7106281-8 (Version None)
Quarter: 2010Q4

REPORT INFORMATION
  Report Type: 
  Country: None (occurrence: None)
  Receive Date: 20101116
  Receipt Date: 20101012
  Transmission Date: 20110411
  Serious: Yes (Life-Threatening)
  Sender: FDA-Public Use
  Company Number: PHHY2010IT68047

PATIENT
  Sex: Female

DRUGS (1)
  1. SANDIMMUNE [Suspect]
     Indication: TRANSPLANT REJECTION
     Dosage: 66 MG/DAY
     Route: 042
     Dates: start: 20100829, end: 20100915

REACTIONS (5)
  - COUGH [None]
  - ERYTHEMA [None]
  - HEART RATE INCREASED [None]
  - LARYNGOSPASM [None]
  - OXYGEN SATURATION DECREASED [None]
